FAERS Safety Report 7777065-2 (Version None)
Quarter: 2011Q3

REPORT INFORMATION
  Report Type: 
  Country: None (occurrence: None)
  Receive Date: 20110926
  Receipt Date: 20110926
  Transmission Date: 20111222
  Serious: Yes (Hospitalization)
  Sender: FDA-Public Use
  Company Number: None

PATIENT
  Age: 27 Year
  Sex: Male
  Weight: 104 kg

DRUGS (1)
  1. ADDERALL 5 [Suspect]
     Indication: ATTENTION DEFICIT/HYPERACTIVITY DISORDER
     Dosage: 30 MG
     Route: 048
     Dates: start: 20110818, end: 20110923

REACTIONS (4)
  - RHABDOMYOLYSIS [None]
  - RENAL FAILURE ACUTE [None]
  - PRODUCT SUBSTITUTION ISSUE [None]
  - DYSKINESIA [None]
